FAERS Safety Report 22594089 (Version 1)
Quarter: 2023Q2

REPORT INFORMATION
  Report Type: Spontaneous
  Country: IN (occurrence: IN)
  Receive Date: 20230613
  Receipt Date: 20230613
  Transmission Date: 20230721
  Serious: Yes (Disabling)
  Sender: FDA-Public Use
  Company Number: IN-002147023-NVSC2023IN131125

PATIENT
  Age: 7 Year
  Sex: Female

DRUGS (1)
  1. ZOLEDRONIC ACID [Suspect]
     Active Substance: ZOLEDRONIC ACID
     Indication: Osteogenesis imperfecta
     Dosage: 4 MG, 17 TIMES OVER 3 YEARS (68 MG TOTAL)
     Route: 042

REACTIONS (1)
  - Osteopetrosis [Unknown]
